FAERS Safety Report 8341575-X (Version None)
Quarter: 2012Q2

REPORT INFORMATION
  Report Type: 
  Country: None (occurrence: None)
  Receive Date: 20120507
  Receipt Date: 20120501
  Transmission Date: 20120825
  Serious: No
  Sender: FDA-Public Use
  Company Number: US-PFIZER INC-2012076181

PATIENT
  Sex: Male
  Weight: 66.7 kg

DRUGS (6)
  1. LIPITOR [Suspect]
     Indication: BLOOD CHOLESTEROL INCREASED
     Dosage: 10 MG, 1X/DAY
     Route: 048
     Dates: start: 20020101, end: 20110101
  2. ASPIRIN [Concomitant]
     Dosage: UNK MG , TWO TIMES A DAY
  3. SYNTHROID [Concomitant]
     Dosage: UNK, ONCE A DAY
  4. METOPROLOL [Concomitant]
     Indication: HYPERTENSION
     Dosage: 50 MG, UNK
  5. ATORVASTATIN CALCIUM [Suspect]
     Dosage: 10 MG, 1X/DAY
     Route: 048
     Dates: start: 20111212, end: 20120201
  6. ATORVASTATIN CALCIUM [Suspect]
     Dosage: 1/2 PILL OF 20 MG TAB, AT BEDTIME

REACTIONS (4)
  - MALAISE [None]
  - FEELING HOT [None]
  - FEELING ABNORMAL [None]
  - DIZZINESS [None]
